FAERS Safety Report 9595184 (Version 2)
Quarter: 2013Q4

REPORT INFORMATION
  Report Type: Spontaneous
  Country: US (occurrence: US)
  Receive Date: 20131004
  Receipt Date: 20131004
  Transmission Date: 20140711
  Serious: No
  Sender: FDA-Public Use
  Company Number: US-PURDUE-USA-2012-0091369

PATIENT
  Age: 49 Year
  Sex: Female
  Weight: 78.46 kg

DRUGS (3)
  1. BUTRANS [Suspect]
     Indication: BACK PAIN
     Dosage: 5 MCG, UNK
     Route: 062
     Dates: start: 20120423, end: 20120701
  2. BUTRANS [Suspect]
     Indication: NECK PAIN
  3. IBUPROFEN [Concomitant]
     Indication: PRODUCT USED FOR UNKNOWN INDICATION
     Dosage: 800 MG, UNK
     Route: 048
     Dates: start: 201205

REACTIONS (6)
  - Application site burn [Recovered/Resolved]
  - Application site pruritus [Not Recovered/Not Resolved]
  - Application site vesicles [Recovered/Resolved]
  - Product adhesion issue [Unknown]
  - Wrong technique in drug usage process [Unknown]
  - Application site irritation [Recovered/Resolved]
